FAERS Safety Report 14797906 (Version 1)
Quarter: 2018Q2

REPORT INFORMATION
  Report Type: Spontaneous
  Country: US (occurrence: US)
  Receive Date: 20180424
  Receipt Date: 20180424
  Transmission Date: 20180711
  Serious: No
  Sender: FDA-Public Use
  Company Number: US-SHIRE-US201814985

PATIENT
  Age: 72 Year
  Sex: Female
  Weight: 56.69 kg

DRUGS (1)
  1. XIIDRA [Suspect]
     Active Substance: LIFITEGRAST
     Indication: DRY EYE
     Dosage: 1 GTT, 2X/DAY:BID
     Route: 047
     Dates: start: 201804

REACTIONS (5)
  - Instillation site burn [Recovering/Resolving]
  - Instillation site erythema [Recovering/Resolving]
  - Vision blurred [Recovering/Resolving]
  - Instillation site reaction [Recovering/Resolving]
  - Instillation site pain [Recovering/Resolving]

NARRATIVE: CASE EVENT DATE: 201804
